FAERS Safety Report 24328675 (Version 1)
Quarter: 2024Q3

REPORT INFORMATION
  Report Type: Spontaneous
  Country: CA (occurrence: CA)
  Receive Date: 20240917
  Receipt Date: 20240917
  Transmission Date: 20241017
  Serious: Yes (Death)
  Sender: TEVA
  Company Number: CA-TEVA-VS-3242568

PATIENT
  Age: 28 Year
  Sex: Female

DRUGS (1)
  1. PACLITAXEL [Suspect]
     Active Substance: PACLITAXEL
     Indication: Ovarian cancer
     Dosage: DOSE FORM: LIQUID INTRAVENOUS
     Route: 065

REACTIONS (3)
  - Anaphylactic reaction [Fatal]
  - Shock [Fatal]
  - Acute kidney injury [Fatal]
